FAERS Safety Report 10310616 (Version 2)
Quarter: 2014Q4

REPORT INFORMATION
  Report Type: Report from Study
  Country: FR (occurrence: None)
  Receive Date: 20140715
  Receipt Date: 20141125
  Transmission Date: 20150528
  Serious: Yes (Hospitalization)
  Sender: FDA-Public Use
  Company Number: 2014-FR-008642

PATIENT
  Age: 56 Year
  Sex: Female

DRUGS (3)
  1. MODIODAL (MODAFINIL) [Concomitant]
  2. EFFEXOR (VENLAFAXINE HYDROCHLORIDE) [Concomitant]
  3. XYREM [Suspect]
     Active Substance: SODIUM OXYBATE
     Indication: PRODUCT USED FOR UNKNOWN INDICATION
     Route: 048
     Dates: start: 20140320

REACTIONS (8)
  - Nausea [None]
  - Investigation [None]
  - Limb discomfort [None]
  - Headache [None]
  - Insomnia [None]
  - Fatigue [None]
  - Abdominal distension [None]
  - Vomiting [None]

NARRATIVE: CASE EVENT DATE: 201404
